FAERS Safety Report 6190413-2 (Version None)
Quarter: 2009Q2

REPORT INFORMATION
  Report Type: 
  Country: None (occurrence: None)
  Receive Date: 20090514
  Receipt Date: 20090506
  Transmission Date: 20091009
  Serious: Yes (Hospitalization)
  Sender: FDA-Public Use
  Company Number: US-GENENTECH-278560

PATIENT
  Sex: Male
  Weight: 60.5 kg

DRUGS (8)
  1. RITUXIMAB [Suspect]
     Indication: LYMPHOMA
     Dosage: 619 MG, UNK
     Route: 042
     Dates: start: 20090126, end: 20090202
  2. VELCADE [Suspect]
     Indication: LYMPHOMA
     Dosage: 2.64 MG, UNK
     Route: 042
     Dates: start: 20090126, end: 20090202
  3. BENDAMUSTINE [Suspect]
     Indication: LYMPHOMA
     Dosage: 149 MG, UNK
     Route: 042
     Dates: start: 20090126
  4. ALBUTEROL [Concomitant]
     Indication: DRUG USE FOR UNKNOWN INDICATION
  5. DOXEPIN HCL [Concomitant]
     Indication: DRUG USE FOR UNKNOWN INDICATION
  6. ONDANSETRON [Concomitant]
     Indication: DRUG USE FOR UNKNOWN INDICATION
  7. PROPOXYPHENE HCL CAP [Concomitant]
     Indication: DRUG USE FOR UNKNOWN INDICATION
  8. DOCUSATE SODIUM/SENNOSIDES [Concomitant]
     Indication: DRUG USE FOR UNKNOWN INDICATION

REACTIONS (1)
  - FEBRILE NEUTROPENIA [None]
